FAERS Safety Report 8243111-5 (Version None)
Quarter: 2012Q1

REPORT INFORMATION
  Report Type: 
  Country: None (occurrence: None)
  Receive Date: 20120329
  Receipt Date: 20111228
  Transmission Date: 20120608
  Serious: Yes (Hospitalization)
  Sender: FDA-Public Use
  Company Number: US-MYLANLABS-2011S1026431

PATIENT
  Age: 57 Year
  Sex: Female

DRUGS (1)
  1. ALBUTEROL SULATE [Suspect]
     Indication: ASTHMA
     Route: 055

REACTIONS (2)
  - ASTHMA [None]
  - DRUG INEFFECTIVE [None]
